FAERS Safety Report 8508717-4 (Version None)
Quarter: 2012Q3

REPORT INFORMATION
  Report Type: 
  Country: None (occurrence: None)
  Receive Date: 20120713
  Receipt Date: 20120709
  Transmission Date: 20120928
  Serious: Yes (Disabling, Other)
  Sender: FDA-Public Use
  Company Number: US-PFIZER INC-2012164361

PATIENT
  Sex: Female
  Weight: 58.05 kg

DRUGS (12)
  1. FOSAMAX [Concomitant]
     Indication: OSTEOPOROSIS
     Dosage: ^80 MG^, WEEKLY
     Dates: start: 19920101
  2. CLOPIDOGREL [Concomitant]
     Dosage: UNK
  3. BENICAR [Concomitant]
     Dosage: 40 MG, DAILY
     Route: 048
  4. LYRICA [Suspect]
     Indication: NEURALGIA
     Dosage: 100 MG, 3X/DAY
     Route: 048
  5. ISOSORBIDE [Concomitant]
     Dosage: UNK
  6. LOVASTATIN [Concomitant]
     Dosage: UNK
  7. METOPROLOL [Concomitant]
     Dosage: UNK
  8. LYRICA [Suspect]
     Dosage: 100 MG, 2X/DAY
     Route: 048
  9. AMLODIPINE [Concomitant]
     Dosage: UNK
  10. MELOXICAM [Concomitant]
     Dosage: UNK
  11. LYRICA [Suspect]
     Dosage: 100 MG, 3X/DAY
     Route: 048
  12. FUROSEMIDE [Concomitant]
     Dosage: UNK

REACTIONS (3)
  - VISION BLURRED [None]
  - DRUG ADMINISTRATION ERROR [None]
  - BLINDNESS [None]
